FAERS Safety Report 18103994 (Version 1)
Quarter: 2020Q3

REPORT INFORMATION
  Report Type: Spontaneous
  Country: US (occurrence: US)
  Receive Date: 20200802
  Receipt Date: 20200802
  Transmission Date: 20201103
  Serious: No
  Sender: FDA-Public Use
  Company Number: None

PATIENT
  Age: 62 Year
  Sex: Female
  Weight: 47.25 kg

DRUGS (6)
  1. NEXT HAND SANITIZER [Suspect]
     Active Substance: ALCOHOL
     Indication: COVID-19 PROPHYLAXIS
     Dosage: ?          QUANTITY:8 OUNCE(S);?
     Route: 061
  2. LAMICTAL [Concomitant]
     Active Substance: LAMOTRIGINE
  3. NIACIN. [Concomitant]
     Active Substance: NIACIN
  4. PROZAC [Concomitant]
     Active Substance: FLUOXETINE HYDROCHLORIDE
  5. VITAMIN C,B,C [Concomitant]
  6. SELENIUM [Concomitant]
     Active Substance: SELENIUM

REACTIONS (4)
  - Headache [None]
  - Recalled product administered [None]
  - Disinfectant poisoning [None]
  - Product contamination chemical [None]

NARRATIVE: CASE EVENT DATE: 20200727
